FAERS Safety Report 8560165-7 (Version None)
Quarter: 2012Q3

REPORT INFORMATION
  Report Type: 
  Country: None (occurrence: None)
  Receive Date: 20120723
  Receipt Date: 20120712
  Transmission Date: 20120928
  Serious: Yes (Other)
  Sender: FDA-Public Use
  Company Number: 2009JP005632

PATIENT
  Age: 54 Year
  Sex: Female
  Weight: 40 kg

DRUGS (17)
  1. FAMOTIDINE [Concomitant]
  2. ALDACTONE [Concomitant]
  3. METHYLPREDNISOLONE (METHYLOPREDNISOLONE) [Concomitant]
  4. PLETAL [Concomitant]
  5. ALOSENN (ACHILLEA MILLEFOLIUM, RUBIA TINCTORUM ROOT TINCTURE, SENNA AL [Concomitant]
  6. PROCYLIN (BERAPROST SODIUM) [Concomitant]
  7. GASMOTIN (MOSAPRIDE CITRATE) [Concomitant]
  8. GOSHAJINKIGAN (HERBAL EXTRACT NOS) [Concomitant]
  9. ETODOLAC [Concomitant]
  10. CLARITHROMYCIN [Concomitant]
  11. ALLOPURINOL [Concomitant]
  12. EVISTA [Concomitant]
  13. LASIX [Concomitant]
  14. PL GRAN. (CAFFEINE, PARACETAMOL, PROMETHAZINE METHYLENE DISALICYLATE, [Concomitant]
  15. LOXONIN (LOXOPROFEN SODIUM) [Concomitant]
  16. TACROLIMUS [Suspect]
     Indication: LUPUS NEPHRITIS
     Dosage: 3 MG, ORAL
     Route: 048
     Dates: start: 20070927
  17. SAIREI-TO (HERBAL EXTRACT NOS) [Concomitant]

REACTIONS (9)
  - THROMBOPHLEBITIS [None]
  - HYPERURICAEMIA [None]
  - BACK PAIN [None]
  - ATROPHIC VULVOVAGINITIS [None]
  - CYSTITIS [None]
  - HAEMORRHAGE SUBCUTANEOUS [None]
  - HAEMORRHAGE [None]
  - PHARYNGITIS [None]
  - TINEA INFECTION [None]
